FAERS Safety Report 6831737-2 (Version None)
Quarter: 2010Q2

REPORT INFORMATION
  Report Type: 
  Country: None (occurrence: None)
  Receive Date: 20100520
  Receipt Date: 20090722
  Transmission Date: 20101027
  Serious: Yes (Hospitalization, Disabling, Other)
  Sender: FDA-Public Use
  Company Number: 2009194495

PATIENT
  Age: 57 Year
  Sex: Female
  Weight: 84 kg

DRUGS (12)
  1. MEDROXYPROGESTERONE ACETATE [Suspect]
     Indication: HORMONE REPLACEMENT THERAPY
     Dosage: 2.5 MG, ORAL
     Route: 048
     Dates: start: 19990101
  2. PREMARIN [Suspect]
     Indication: HORMONE REPLACEMENT THERAPY
     Dosage: 0.625 MG, ORAL ; 0.9 MG, ORAL
     Route: 048
     Dates: start: 19950101, end: 19960101
  3. PREMARIN [Suspect]
     Indication: HORMONE REPLACEMENT THERAPY
     Dosage: 0.625 MG, ORAL ; 0.9 MG, ORAL
     Route: 048
     Dates: start: 19960101, end: 19990101
  4. COMBIPATCH [Suspect]
     Indication: HORMONE REPLACEMENT THERAPY
     Dosage: TRANSDERMAL
     Route: 062
     Dates: start: 20010101, end: 20010101
  5. PREMPRO [Suspect]
     Indication: HORMONE REPLACEMENT THERAPY
     Dosage: 0.625/2.5MG, ORAL ; 0.625/5MG, ORAL
     Route: 048
     Dates: start: 20010101, end: 20030101
  6. PREMPRO [Suspect]
     Indication: HORMONE REPLACEMENT THERAPY
     Dosage: 0.625/2.5MG, ORAL ; 0.625/5MG, ORAL
     Route: 048
     Dates: start: 20030101
  7. ZYRTEC [Concomitant]
  8. PRILOSEC (OMEPRAZOLE) [Concomitant]
  9. ALBUTEROL [Concomitant]
  10. DIOVANE (VALSARTAN) [Concomitant]
  11. TRIAMTERENE (TRIAMTERENE) [Concomitant]
  12. ATENOLOL [Concomitant]

REACTIONS (1)
  - BREAST CANCER FEMALE [None]
